FAERS Safety Report 25675243 (Version 1)
Quarter: 2025Q3

REPORT INFORMATION
  Report Type: Spontaneous
  Country: PE (occurrence: PE)
  Receive Date: 20250813
  Receipt Date: 20250813
  Transmission Date: 20251021
  Serious: Yes (Hospitalization, Other)
  Sender: MANKIND PHARMA
  Company Number: PE-MankindUS-000452

PATIENT
  Age: 54 Year
  Sex: Male

DRUGS (1)
  1. ACETAZOLAMIDE [Suspect]
     Active Substance: ACETAZOLAMIDE
     Indication: Prophylaxis
     Route: 048

REACTIONS (5)
  - Acute kidney injury [Recovered/Resolved]
  - Crystalluria [Recovering/Resolving]
  - Tubulointerstitial nephritis [Recovering/Resolving]
  - Condition aggravated [Recovering/Resolving]
  - Nephropathy toxic [Recovering/Resolving]
